FAERS Safety Report 9439739 (Version 1)
Quarter: 2013Q3

REPORT INFORMATION
  Report Type: Spontaneous
  Country: US (occurrence: None)
  Receive Date: 20130802
  Receipt Date: 20130802
  Transmission Date: 20140515
  Serious: Yes (Other)
  Sender: FDA-Public Use
  Company Number: None

PATIENT
  Age: 51 Year
  Sex: Female
  Weight: 62.14 kg

DRUGS (1)
  1. SIMVASTATIN [Suspect]
     Indication: HYPERLIPIDAEMIA
     Dosage: 1 TABLET DAILY ORAL
     Route: 048
     Dates: start: 20130715, end: 20130716

REACTIONS (3)
  - Swollen tongue [None]
  - Rash pruritic [None]
  - Pain of skin [None]
